FAERS Safety Report 18009182 (Version 1)
Quarter: 2020Q3

REPORT INFORMATION
  Report Type: Spontaneous
  Country: US (occurrence: US)
  Receive Date: 20200710
  Receipt Date: 20200710
  Transmission Date: 20201103
  Serious: No
  Sender: FDA-Public Use
  Company Number: US-SAOL THERAPEUTICS-2020SAO00082

PATIENT
  Age: 51 Year
  Sex: Male
  Weight: 90.7 kg

DRUGS (8)
  1. LIORESAL [Suspect]
     Active Substance: BACLOFEN
     Indication: PARAPLEGIA
     Dosage: 530 ?G, \DAY
     Route: 037
     Dates: start: 20200303, end: 20200318
  2. OMEPRAZOLE. [Concomitant]
     Active Substance: OMEPRAZOLE
  3. CIALIS [Concomitant]
     Active Substance: TADALAFIL
  4. LIORESAL [Suspect]
     Active Substance: BACLOFEN
     Dosage: 345 ?G, \DAY
     Route: 037
  5. LIORESAL [Suspect]
     Active Substance: BACLOFEN
     Indication: PARAPLEGIA
     Dosage: UNK ?G, \DAY
     Route: 037
  6. LIORESAL [Suspect]
     Active Substance: BACLOFEN
     Dosage: 22.12 ?G/HOUR (DECREASED FROM PREVIOUS DOSE BY 30 %)
     Route: 037
     Dates: start: 20200318, end: 2020
  7. LIORESAL [Suspect]
     Active Substance: BACLOFEN
     Dosage: 450 ?G, \DAY
     Route: 037
     Dates: start: 2020
  8. RITUXAN [Concomitant]
     Active Substance: RITUXIMAB
     Dosage: UNK UNK, 2X/YEAR; EVERY 6 MONTHS
     Route: 042

REACTIONS (7)
  - Hangover [Recovered/Resolved]
  - Clumsiness [Recovering/Resolving]
  - Coordination abnormal [Recovering/Resolving]
  - Hypoaesthesia oral [Recovered/Resolved]
  - Muscle spasticity [Recovered/Resolved]
  - Hypoaesthesia [Recovered/Resolved]
  - Nausea [Recovered/Resolved]

NARRATIVE: CASE EVENT DATE: 20200316
